FAERS Safety Report 4691871-2 (Version None)
Quarter: 2005Q2

REPORT INFORMATION
  Report Type: 
  Country: None (occurrence: None)
  Receive Date: 20050615
  Receipt Date: 20050615
  Transmission Date: 20051028
  Serious: Yes (Other)
  Sender: FDA-Public Use
  Company Number: None

PATIENT
  Age: 24 Year
  Sex: Male
  Weight: 53.5244 kg

DRUGS (5)
  1. COUMADIN [Suspect]
     Indication: DEEP VEIN THROMBOSIS
     Dosage: 2.5 MG ; 3T PO QD
     Route: 048
     Dates: start: 20050512
  2. COUMADIN [Suspect]
     Indication: PULMONARY EMBOLISM
     Dosage: 2.5 MG ; 3T PO QD
     Route: 048
     Dates: start: 20050512
  3. GEODON [Concomitant]
  4. ZOLOFT [Concomitant]
  5. ZYPREXA [Concomitant]

REACTIONS (2)
  - ALOPECIA [None]
  - HAIR DISORDER [None]
